FAERS Safety Report 9300411 (Version 3)
Quarter: 2013Q3

REPORT INFORMATION
  Report Type: Spontaneous
  Country: US (occurrence: US)
  Receive Date: 20130521
  Receipt Date: 20130730
  Transmission Date: 20140515
  Serious: No
  Sender: FDA-Public Use
  Company Number: US-VERTEX PHARMACEUTICALS INC-2013-006172

PATIENT
  Age: 65 Year
  Sex: Male
  Weight: 66 kg

DRUGS (5)
  1. INCIVEK [Suspect]
     Indication: HEPATITIS C
     Dosage: 750 MG, TID
     Route: 048
     Dates: start: 20130422
  2. RIBAVIRIN [Suspect]
     Indication: HEPATITIS C
     Dosage: 600 MG QAM, 400 MG QPM
     Route: 048
     Dates: start: 20130422
  3. RIBAVIRIN [Suspect]
     Dosage: 400 MG, BID
     Route: 048
     Dates: start: 201306
  4. PEGASYS [Suspect]
     Indication: HEPATITIS C
     Dosage: 180 ?G, QW
     Route: 058
     Dates: start: 20130422
  5. LORATAB [Concomitant]
     Indication: BACK PAIN
     Dosage: 7.5 MG, Q 3 HRS

REACTIONS (8)
  - Drug dose omission [Recovered/Resolved]
  - Blood count abnormal [Recovered/Resolved]
  - Headache [Not Recovered/Not Resolved]
  - Back pain [Not Recovered/Not Resolved]
  - Glossodynia [Recovered/Resolved]
  - Constipation [Not Recovered/Not Resolved]
  - Oral candidiasis [Not Recovered/Not Resolved]
  - Dysgeusia [Recovered/Resolved]
